FAERS Safety Report 20302120 (Version 1)
Quarter: 2022Q1

REPORT INFORMATION
  Report Type: Spontaneous
  Country: AU (occurrence: AU)
  Receive Date: 20220105
  Receipt Date: 20220105
  Transmission Date: 20220424
  Serious: Yes (Other)
  Sender: FDA-Public Use
  Company Number: AU-ABBVIE-22K-008-4222268-00

PATIENT
  Sex: Male

DRUGS (3)
  1. VALPROATE SODIUM [Suspect]
     Active Substance: VALPROATE SODIUM
     Indication: Product used for unknown indication
     Route: 065
     Dates: start: 20181016
  2. DIAZEPAM [Suspect]
     Active Substance: DIAZEPAM
     Indication: Product used for unknown indication
     Route: 065
  3. THIAMINE [Suspect]
     Active Substance: THIAMINE
     Indication: Product used for unknown indication
     Route: 065

REACTIONS (11)
  - Suicidal ideation [Unknown]
  - Appetite disorder [Unknown]
  - Balance disorder [Unknown]
  - Anger [Unknown]
  - Memory impairment [Unknown]
  - Behaviour disorder [Unknown]
  - Seizure [Unknown]
  - Depression [Unknown]
  - Tremor [Unknown]
  - Confusional state [Unknown]
  - Aggression [Unknown]
